FAERS Safety Report 6482667-X (Version None)
Quarter: 2009Q4

REPORT INFORMATION
  Report Type: 
  Country: None (occurrence: None)
  Receive Date: 20091209
  Receipt Date: 20091201
  Transmission Date: 20100525
  Serious: Yes (Death, Hospitalization, Other)
  Sender: FDA-Public Use
  Company Number: US-BIOGENIDEC-2009BI039692

PATIENT
  Sex: Female

DRUGS (1)
  1. AVONEX [Suspect]
     Indication: MULTIPLE SCLEROSIS
     Route: 030
     Dates: start: 19990101, end: 20000101

REACTIONS (5)
  - CARDIAC PACEMAKER INSERTION [None]
  - CEREBROVASCULAR ACCIDENT [None]
  - GASTROINTESTINAL TUBE INSERTION [None]
  - MULTIPLE SCLEROSIS [None]
  - TRACHEOSTOMY [None]
